FAERS Safety Report 11247105 (Version 2)
Quarter: 2015Q3

REPORT INFORMATION
  Report Type: Spontaneous
  Country: US (occurrence: US)
  Receive Date: 20150708
  Receipt Date: 20150713
  Transmission Date: 20151125
  Serious: Yes (Other)
  Sender: FDA-Public Use
  Company Number: US-PFIZER INC-2015221517

PATIENT
  Age: 77 Year
  Sex: Male

DRUGS (2)
  1. LOVENOX [Concomitant]
     Active Substance: ENOXAPARIN SODIUM
     Dosage: UNK UNK, 2X/DAY
  2. SUTENT [Suspect]
     Active Substance: SUNITINIB MALATE
     Indication: RENAL CELL CARCINOMA
     Dosage: 50 MG, CYCLIC (28 DAYS ON/14 DAYS OFF)
     Dates: start: 20150616, end: 20150702

REACTIONS (22)
  - Decreased appetite [Unknown]
  - Gingival pain [Unknown]
  - Faecal incontinence [Unknown]
  - Dysgeusia [Unknown]
  - Feeding disorder [Unknown]
  - Haemorrhage [Unknown]
  - Oral pain [Unknown]
  - Oral mucosal blistering [Unknown]
  - Dyspepsia [Unknown]
  - Cough [Unknown]
  - Platelet count decreased [Unknown]
  - Glossodynia [Unknown]
  - Fatigue [Unknown]
  - Blood blister [Recovered/Resolved]
  - Nausea [Unknown]
  - Dyspnoea [Unknown]
  - Asthenia [Unknown]
  - Weight decreased [Unknown]
  - Blister [Unknown]
  - Lip blister [Unknown]
  - Proctalgia [Unknown]
  - Hypotension [Unknown]

NARRATIVE: CASE EVENT DATE: 2015
